FAERS Safety Report 6013206 (Version 1)
Quarter: 2020Q3

REPORT INFORMATION
  Report Type: Report from Study
  Country: DE (occurrence: DE)
  Receive Date: 20060328
  Receipt Date: 20060328
  Transmission Date: 20201104
  Serious: Yes (Death, Disabling)
  Sender: FDA-Public Use
  Company Number: DE-JNJFOC-20040605100

PATIENT
  Age: 60 Year
  Sex: Male

DRUGS (13)
  1. GEMCITABINE. [Concomitant]
     Active Substance: GEMCITABINE
  2. AMITRIPTYLINE HYDROCHLORIDE. [Concomitant]
     Active Substance: AMITRIPTYLINE HYDROCHLORIDE
     Route: 048
  3. PANTOZOL [Concomitant]
     Active Substance: PANTOPRAZOLE SODIUM
     Route: 048
  4. MARCUMAR [Concomitant]
     Active Substance: PHENPROCOUMON
     Route: 048
  5. MOTILIUM [Concomitant]
     Active Substance: DOMPERIDONE
     Route: 048
  6. INFLIXIMAB [Suspect]
     Active Substance: INFLIXIMAB
     Route: 042
  7. INFLIXIMAB [Suspect]
     Active Substance: INFLIXIMAB
     Route: 042
  8. INFLIXIMAB [Suspect]
     Active Substance: INFLIXIMAB
     Route: 042
  9. OXYGESIC [Concomitant]
     Active Substance: OXYCODONE
     Route: 048
  10. BIFITERAL [Concomitant]
     Active Substance: LACTULOSE
     Route: 048
  11. INFLIXIMAB [Suspect]
     Active Substance: INFLIXIMAB
     Route: 042
  12. INFLIXIMAB [Suspect]
     Active Substance: INFLIXIMAB
     Route: 042
  13. INFLIXIMAB [Suspect]
     Active Substance: INFLIXIMAB
     Indication: CACHEXIA
     Route: 042

REACTIONS (2)
  - Pancreatic carcinoma [Fatal]
  - Ascites [Not Recovered/Not Resolved]

NARRATIVE: CASE EVENT DATE: 20040423
